FAERS Safety Report 20553742 (Version 1)
Quarter: 2022Q1

REPORT INFORMATION
  Report Type: Spontaneous
  Country: US (occurrence: None)
  Receive Date: 20220304
  Receipt Date: 20220304
  Transmission Date: 20220423
  Serious: Yes (Disabling)
  Sender: FDA-Public Use
  Company Number: None

PATIENT
  Age: 64 Year
  Sex: Female
  Weight: 101.25 kg

DRUGS (6)
  1. JANUVIA [Suspect]
     Active Substance: SITAGLIPTIN PHOSPHATE
     Indication: Blood glucose increased
     Dosage: FREQUENCY : DAILY;?
     Route: 048
     Dates: start: 20220207, end: 20220213
  2. ENBREL [Concomitant]
     Active Substance: ETANERCEPT
  3. LISINOPRIL [Concomitant]
     Active Substance: LISINOPRIL
  4. SIMVASTATIN [Concomitant]
     Active Substance: SIMVASTATIN
  5. BIOTIN [Concomitant]
     Active Substance: BIOTIN
  6. VITAMIN B12 [Concomitant]
     Active Substance: CYANOCOBALAMIN

REACTIONS (5)
  - Arthralgia [None]
  - Gait disturbance [None]
  - Inflammation [None]
  - Sacroiliitis [None]
  - Back pain [None]

NARRATIVE: CASE EVENT DATE: 20220212
